FAERS Safety Report 5925158-4 (Version None)
Quarter: 2008Q4

REPORT INFORMATION
  Report Type: 
  Country: None (occurrence: None)
  Receive Date: 20081020
  Receipt Date: 20081020
  Transmission Date: 20090506
  Serious: Yes (Other)
  Sender: FDA-Public Use
  Company Number: None

PATIENT
  Sex: Female
  Weight: 72.1219 kg

DRUGS (1)
  1. CIPROFLOXACIN [Suspect]
     Indication: URINARY TRACT INFECTION
     Dosage: 500 M.G. EVERY 12 HOURS ORAL
     Route: 048
     Dates: start: 20080929, end: 20081006

REACTIONS (9)
  - ANXIETY [None]
  - CHILLS [None]
  - DIARRHOEA [None]
  - DYSPEPSIA [None]
  - ERUCTATION [None]
  - NAUSEA [None]
  - PANIC ATTACK [None]
  - VIRAL INFECTION [None]
  - WEIGHT DECREASED [None]
